FAERS Safety Report 20917323 (Version 1)
Quarter: 2022Q2

REPORT INFORMATION
  Report Type: Spontaneous
  Country: US (occurrence: US)
  Receive Date: 20220606
  Receipt Date: 20220606
  Transmission Date: 20220721
  Serious: No
  Sender: FDA-Public Use
  Company Number: US-AMGEN-USASP2022094889

PATIENT
  Age: 40 Year
  Sex: Female

DRUGS (10)
  1. FILGRASTIM [Suspect]
     Active Substance: FILGRASTIM
     Indication: Prophylaxis
     Dosage: UNK
     Route: 065
  2. MESNA [Concomitant]
     Active Substance: MESNA
     Indication: Leiomyosarcoma metastatic
     Dosage: UNK
  3. IFOSFAMIDE [Concomitant]
     Active Substance: IFOSFAMIDE
     Indication: Leiomyosarcoma metastatic
     Dosage: UNK
  4. DOXORUBICIN HYDROCHLORIDE [Concomitant]
     Active Substance: DOXORUBICIN HYDROCHLORIDE
     Indication: Leiomyosarcoma metastatic
  5. DACARBAZINE [Concomitant]
     Active Substance: DACARBAZINE
     Indication: Leiomyosarcoma metastatic
  6. ETOPOSIDE [Concomitant]
     Active Substance: ETOPOSIDE
     Indication: Leiomyosarcoma metastatic
  7. CARBOPLATIN [Concomitant]
     Active Substance: CARBOPLATIN
     Indication: Leiomyosarcoma metastatic
  8. INTERLEUKIN-1 [Concomitant]
     Indication: Leiomyosarcoma metastatic
  9. CYCLOPHOSPHAMIDE [Concomitant]
     Active Substance: CYCLOPHOSPHAMIDE
  10. MOLGRAMOSTIM [Concomitant]
     Active Substance: MOLGRAMOSTIM
     Dosage: UNK

REACTIONS (1)
  - Ejection fraction decreased [Unknown]
